FAERS Safety Report 5498348-5 (Version None)
Quarter: 2007Q4

REPORT INFORMATION
  Report Type: 
  Country: None (occurrence: None)
  Receive Date: 20071025
  Receipt Date: 20070530
  Transmission Date: 20080405
  Serious: No
  Sender: FDA-Public Use
  Company Number: A0649891A

PATIENT
  Age: 75 Year
  Sex: Male
  Weight: 65.9 kg

DRUGS (7)
  1. ADVAIR DISKUS 100/50 [Suspect]
     Indication: DRUG USE FOR UNKNOWN INDICATION
     Dosage: 1PUFF TWICE PER DAY
     Route: 055
     Dates: start: 20070424, end: 20070502
  2. DOXYCYCLINE [Concomitant]
  3. PREDNISONE [Concomitant]
  4. MUCINEX [Concomitant]
  5. FLOMAX [Concomitant]
  6. HYDROCHLOROTHIAZIDE [Concomitant]
  7. SYNTHROID [Concomitant]

REACTIONS (5)
  - DYSPHONIA [None]
  - GLOSSITIS [None]
  - GLOSSODYNIA [None]
  - HEADACHE [None]
  - TREMOR [None]
